FAERS Safety Report 23289029 (Version 1)
Quarter: 2023Q4

REPORT INFORMATION
  Report Type: Spontaneous
  Country: LT (occurrence: LT)
  Receive Date: 20231212
  Receipt Date: 20231212
  Transmission Date: 20240110
  Serious: Yes (Other)
  Sender: FDA-Public Use
  Company Number: LT-BAYER-2023A174168

PATIENT
  Age: 65 Year
  Sex: Male

DRUGS (5)
  1. XOFIGO [Suspect]
     Active Substance: RADIUM RA-223 DICHLORIDE
     Indication: Hormone-refractory prostate cancer
     Dosage: FULL 6 CYCLES
     Dates: start: 20230510, end: 20231012
  2. ABIRATERONE [Concomitant]
     Active Substance: ABIRATERONE
     Indication: Hormone-refractory prostate cancer
     Dosage: UNK
  3. DOCETAXEL [Concomitant]
     Active Substance: DOCETAXEL\DOCETAXEL ANHYDROUS
     Indication: Hormone-refractory prostate cancer
     Dosage: UNK
  4. CABAZITAXEL [Concomitant]
     Active Substance: CABAZITAXEL
     Indication: Hormone-refractory prostate cancer
     Dosage: UNK
  5. ENZALUTAMIDE [Concomitant]
     Active Substance: ENZALUTAMIDE
     Indication: Hormone-refractory prostate cancer
     Dosage: UNK
     Dates: start: 20231127

REACTIONS (3)
  - Prostatic specific antigen increased [None]
  - Metastases to bone [None]
  - Lymphoma [None]

NARRATIVE: CASE EVENT DATE: 20230901
